FAERS Safety Report 5152106-X (Version None)
Quarter: 2006Q4

REPORT INFORMATION
  Report Type: 
  Country: None (occurrence: None)
  Receive Date: 20061113
  Receipt Date: 20061113
  Transmission Date: 20070319
  Serious: Yes (Disabling, Other)
  Sender: FDA-Public Use
  Company Number: None

PATIENT
  Sex: Female
  Weight: 95.2554 kg

DRUGS (2)
  1. GENTAMICIN [Suspect]
     Indication: OSTEOMYELITIS
     Dosage: 500MG (7MG/KG/1DAY) Q24HR IV
     Route: 042
     Dates: start: 20060922, end: 20061009
  2. GENTAMICIN [Suspect]
     Indication: PSEUDOMONAS INFECTION
     Dosage: 500MG (7MG/KG/1DAY) Q24HR IV
     Route: 042
     Dates: start: 20060922, end: 20061009

REACTIONS (4)
  - BALANCE DISORDER [None]
  - DIZZINESS [None]
  - HEADACHE [None]
  - TINNITUS [None]
